FAERS Safety Report 6552859-X (Version None)
Quarter: 2010Q1

REPORT INFORMATION
  Report Type: 
  Country: None (occurrence: None)
  Receive Date: 20100122
  Receipt Date: 20100120
  Transmission Date: 20100710
  Serious: Yes (Disabling, Other)
  Sender: FDA-Public Use
  Company Number: PHHY2009FR42157

PATIENT
  Age: 83 Year
  Sex: Female
  Weight: 52.0276 kg

DRUGS (5)
  1. VISUDYNE [Suspect]
     Indication: MACULAR DEGENERATION
     Dates: start: 20090919, end: 20090919
  2. FLUORESCEIN [Concomitant]
  3. AMLOR [Concomitant]
  4. DIAMICRON [Concomitant]
  5. SOTALEX [Concomitant]

REACTIONS (5)
  - CONDITION AGGRAVATED [None]
  - EYE OEDEMA [None]
  - MACULAR DEGENERATION [None]
  - VISION BLURRED [None]
  - VISUAL ACUITY REDUCED [None]
